FAERS Safety Report 20875392 (Version 1)
Quarter: 2022Q2

REPORT INFORMATION
  Report Type: Report from Study
  Country: US (occurrence: US)
  Receive Date: 20220526
  Receipt Date: 20220526
  Transmission Date: 20220721
  Serious: Yes (Death)
  Sender: FDA-Public Use
  Company Number: US-NOVARTISPH-NVSC2022US121136

PATIENT
  Sex: Male

DRUGS (1)
  1. PROMACTA [Suspect]
     Active Substance: ELTROMBOPAG OLAMINE
     Indication: Refractory anaemia with an excess of blasts
     Dosage: 1 DOSAGE FORM, QD (ON AN EMPTY STOMACH 1 HR BEFORE OR 2 HRS AFTER FOOD)
     Route: 048
     Dates: start: 20220121

REACTIONS (1)
  - Death [Fatal]
